FAERS Safety Report 7928248-X (Version None)
Quarter: 2011Q4

REPORT INFORMATION
  Report Type: 
  Country: None (occurrence: None)
  Receive Date: 20111118
  Receipt Date: 20111111
  Transmission Date: 20120403
  Serious: Yes (Death)
  Sender: FDA-Public Use
  Company Number: US-JNJFOC-20110101525

PATIENT
  Age: 14 Year
  Sex: Male

DRUGS (7)
  1. ACETAMINOPHEN [Suspect]
     Indication: COMPLETED SUICIDE
     Route: 048
  2. UNKNOWN MEDICATION [Suspect]
     Indication: COMPLETED SUICIDE
     Route: 065
  3. DIPHENOXYLATE HCL + ATROPINE SULFATE [Suspect]
     Indication: COMPLETED SUICIDE
     Route: 048
  4. ACETAMINOPHEN [Suspect]
     Route: 048
  5. FLUOXETINE [Suspect]
     Indication: COMPLETED SUICIDE
     Route: 048
  6. OLMESARTAN MEDOXOMIL/HYDROCHLOROTHIAZIDE (BENCAR HCT) [Suspect]
     Indication: COMPLETED SUICIDE
     Route: 065
  7. PREDNISOLONE [Suspect]
     Indication: COMPLETED SUICIDE
     Route: 048

REACTIONS (2)
  - COMPLETED SUICIDE [None]
  - TOXICITY TO VARIOUS AGENTS [None]
